FAERS Safety Report 12237555 (Version 1)
Quarter: 2016Q2

REPORT INFORMATION
  Report Type: Spontaneous
  Country: ES (occurrence: ES)
  Receive Date: 20160405
  Receipt Date: 20160405
  Transmission Date: 20160815
  Serious: Yes (Hospitalization)
  Sender: FDA-Public Use
  Company Number: ES-IPCA LABORATORIES LIMITED-IPC201603-000348

PATIENT
  Age: 71 Year
  Sex: Female

DRUGS (16)
  1. FENTANYL. [Suspect]
     Active Substance: FENTANYL
     Route: 062
  2. SIMVASTATIN. [Concomitant]
     Active Substance: SIMVASTATIN
  3. FENTANYL. [Suspect]
     Active Substance: FENTANYL
     Indication: PAIN MANAGEMENT
     Route: 062
  4. MIRTAZAPINE. [Suspect]
     Active Substance: MIRTAZAPINE
     Indication: DEPRESSION
  5. FUROSEMIDE. [Concomitant]
     Active Substance: FUROSEMIDE
  6. MIRTAZAPINE. [Suspect]
     Active Substance: MIRTAZAPINE
     Indication: INSOMNIA
  7. BISOPROLOL [Concomitant]
     Active Substance: BISOPROLOL
  8. PARACETAMOL [Concomitant]
     Active Substance: ACETAMINOPHEN
  9. SPIRONOLACTONE. [Concomitant]
     Active Substance: SPIRONOLACTONE
  10. ENALAPRIL [Concomitant]
     Active Substance: ENALAPRIL
  11. TRAMADOL. [Suspect]
     Active Substance: TRAMADOL
     Indication: ANTIDEPRESSANT THERAPY
  12. TRAMADOL. [Suspect]
     Active Substance: TRAMADOL
     Indication: PAIN MANAGEMENT
  13. ACENOCUMAROL [Concomitant]
     Active Substance: ACENOCOUMAROL
  14. DULOXETINE. [Suspect]
     Active Substance: DULOXETINE
     Indication: ANTIDEPRESSANT THERAPY
  15. PREGABALIN. [Concomitant]
     Active Substance: PREGABALIN
  16. LORAZEPAM. [Concomitant]
     Active Substance: LORAZEPAM

REACTIONS (1)
  - Myoclonus [Recovering/Resolving]
